FAERS Safety Report 6393744-6 (Version None)
Quarter: 2009Q4

REPORT INFORMATION
  Report Type: 
  Country: None (occurrence: None)
  Receive Date: 20091008
  Receipt Date: 20090928
  Transmission Date: 20100525
  Serious: No
  Sender: FDA-Public Use
  Company Number: IE-WYE-G04401909

PATIENT
  Sex: Female
  Weight: 54 kg

DRUGS (14)
  1. RELISTOR [Suspect]
     Indication: CONSTIPATION
     Dosage: 8MG STAT
     Route: 058
     Dates: start: 20090826
  2. LYRICA [Concomitant]
     Route: 048
  3. MOTILIUM [Concomitant]
     Route: 048
  4. OMEPRAZOLE [Concomitant]
     Route: 048
  5. NYSTATIN [Concomitant]
     Route: 048
  6. INNOHEP [Concomitant]
     Dosage: 9000 TSP EVERY
     Route: 058
  7. ZOPICLONE [Concomitant]
     Route: 048
  8. ORAMORPH SR [Concomitant]
     Dosage: 20MG FOUR TIMES DAILY WHEN REQUIRED
     Route: 048
  9. EMEND [Concomitant]
     Dosage: (DOSE UNKNOWN) TWO DAYS DURATION
     Route: 048
  10. CYCLIZINE [Concomitant]
     Dosage: (DOSE UNKNOWN) DURATION FOR 3-5DAYS
     Route: 048
  11. NEULASTA [Concomitant]
     Dosage: (UNKNOWN DOSE) GIVEN FIRST DAY POST CHEMO
     Route: 058
  12. CODALAX [Concomitant]
     Dosage: TWO TABLETS AT NIGHT
     Route: 048
  13. DURAGESIC-100 [Concomitant]
     Dosage: 75MCG/HR/72HR
     Route: 062
  14. DULCOLAX [Concomitant]
     Dosage: 10ML ONCE TO TWICE DAILY WHEN REQUIRED
     Route: 048

REACTIONS (4)
  - ABDOMINAL PAIN [None]
  - CHEST DISCOMFORT [None]
  - CHEST PAIN [None]
  - FAECAL VOLUME DECREASED [None]
